FAERS Safety Report 8960530 (Version 1)
Quarter: 2012Q4

REPORT INFORMATION
  Report Type: Spontaneous
  Country: TR (occurrence: None)
  Receive Date: 20121203
  Receipt Date: 20121203
  Transmission Date: 20130627
  Serious: Yes (Life-Threatening, Hospitalization)
  Sender: FDA-Public Use
  Company Number: TR-AGG-11-2012-0517

PATIENT
  Age: 73 Year
  Sex: Male

DRUGS (5)
  1. TIROFIBAN HYDROCHLORIDE [Suspect]
     Indication: ACUTE MYOCARDIAL INFARCTION
     Dosage: 10ug/kg x1, 1x a minute
     Route: 042
  2. TIROFIBAN HYDROCHLORIDE [Suspect]
     Indication: ACUTE MYOCARDIAL INFARCTION
     Dosage: 0.15ug/kg x 1, 1x a minute
     Route: 042
  3. ASPIRIN [Suspect]
     Indication: ACUTE MYOCARDIAL INFARCTION
  4. HEPARIN [Concomitant]
  5. CLOPIDOGREL [Concomitant]

REACTIONS (3)
  - Thrombocytopenia [None]
  - Pulmonary alveolar haemorrhage [None]
  - Haemoglobin decreased [None]
